FAERS Safety Report 12837738 (Version 1)
Quarter: 2016Q4

REPORT INFORMATION
  Report Type: Spontaneous
  Country: US (occurrence: US)
  Receive Date: 20161012
  Receipt Date: 20161012
  Transmission Date: 20170207
  Serious: No
  Sender: FDA-Public Use
  Company Number: US-ELI_LILLY_AND_COMPANY-US201610003299

PATIENT
  Age: 74 Year
  Sex: Female

DRUGS (2)
  1. METOPROLOL. [Concomitant]
     Active Substance: METOPROLOL
     Dosage: 50 MG, QD
  2. FORTEO [Suspect]
     Active Substance: TERIPARATIDE
     Indication: OSTEOPOROSIS
     Dosage: UNK, QD
     Dates: start: 20161010

REACTIONS (4)
  - Injection site erythema [Recovered/Resolved]
  - Dizziness [Recovered/Resolved]
  - Visual impairment [Recovered/Resolved]
  - Nausea [Recovered/Resolved]

NARRATIVE: CASE EVENT DATE: 20161010
